FAERS Safety Report 10571464 (Version 3)
Quarter: 2016Q2

REPORT INFORMATION
  Report Type: Spontaneous
  Country: US (occurrence: US)
  Receive Date: 20141107
  Receipt Date: 20160628
  Transmission Date: 20160815
  Serious: Yes (Life-Threatening, Hospitalization)
  Sender: FDA-Public Use
  Company Number: US-BAYER-2014-163070

PATIENT
  Age: 25 Year
  Sex: Female

DRUGS (2)
  1. TYLENOL [DIPHENHYDRAMINE HYDROCHLORIDE,PARACETAMOL] [Concomitant]
     Active Substance: ACETAMINOPHEN\DIPHENHYDRAMINE HYDROCHLORIDE
  2. MIRENA [Suspect]
     Active Substance: LEVONORGESTREL
     Indication: CONTRACEPTION
     Dosage: 20 MCG/24HR, CONT
     Route: 015
     Dates: start: 201111, end: 20120114

REACTIONS (10)
  - Salpingo-oophoritis [None]
  - Cardiac disorder [None]
  - Uterine infection [None]
  - Injury [None]
  - Septic shock [None]
  - Lung disorder [None]
  - Device issue [None]
  - Renal disorder [None]
  - Pain [None]
  - Uterine perforation [None]

NARRATIVE: CASE EVENT DATE: 201201
